FAERS Safety Report 19800307 (Version 1)
Quarter: 2021Q3

REPORT INFORMATION
  Report Type: Report from Study
  Country: None (occurrence: US)
  Receive Date: 20210908
  Receipt Date: 20210908
  Transmission Date: 20211014
  Serious: Yes (Hospitalization, Other)
  Sender: FDA-Public Use
  Company Number: US-ABBVIE-21K-163-4014840-00

PATIENT
  Sex: Female
  Weight: 87.62 kg

DRUGS (4)
  1. HUMIRA [Suspect]
     Active Substance: ADALIMUMAB
     Indication: ANKYLOSING SPONDYLITIS
     Dosage: CITRATE FREE
     Route: 058
     Dates: start: 20210324, end: 202107
  2. MODERNA COVID?19 VACCINE [Concomitant]
     Active Substance: CX-024414
     Indication: COVID-19 IMMUNISATION
     Dosage: MODERNA 1ST DOSE
     Route: 030
     Dates: start: 20210127, end: 20210127
  3. HUMIRA [Suspect]
     Active Substance: ADALIMUMAB
     Dosage: CITRATE FREE
     Route: 058
     Dates: start: 20210728
  4. MODERNA COVID?19 VACCINE [Concomitant]
     Active Substance: CX-024414
     Dosage: MODERNA 2ND DOSE
     Route: 030
     Dates: start: 20210224, end: 20210224

REACTIONS (3)
  - Pain [Not Recovered/Not Resolved]
  - Osteoarthritis [Recovering/Resolving]
  - Peripheral venous disease [Unknown]

NARRATIVE: CASE EVENT DATE: 2021
